FAERS Safety Report 5489169-8 (Version None)
Quarter: 2007Q4

REPORT INFORMATION
  Report Type: 
  Country: None (occurrence: None)
  Receive Date: 20071018
  Receipt Date: 20061121
  Transmission Date: 20080405
  Serious: No
  Sender: FDA-Public Use
  Company Number: A0630126A

PATIENT
  Sex: Female

DRUGS (2)
  1. FASTIN [Suspect]
     Route: 048
  2. PHENTERMINE [Suspect]

REACTIONS (5)
  - ADVERSE EVENT [None]
  - DIZZINESS [None]
  - DRUG INEFFECTIVE [None]
  - INCREASED APPETITE [None]
  - NERVOUS SYSTEM DISORDER [None]
